FAERS Safety Report 20792530 (Version 4)
Quarter: 2022Q2

REPORT INFORMATION
  Report Type: Spontaneous
  Country: US (occurrence: US)
  Receive Date: 20220506
  Receipt Date: 20220612
  Transmission Date: 20220721
  Serious: Yes (Other)
  Sender: FDA-Public Use
  Company Number: US-UNITED THERAPEUTICS-UNT-2022-009452

PATIENT
  Age: 50 Year
  Sex: Male

DRUGS (7)
  1. ORENITRAM [Suspect]
     Active Substance: TREPROSTINIL
     Indication: Pulmonary arterial hypertension
     Dosage: UNK
     Route: 048
     Dates: start: 20220425
  2. ORENITRAM [Suspect]
     Active Substance: TREPROSTINIL
     Dosage: UNK
     Route: 048
     Dates: start: 20220427
  3. ORENITRAM [Suspect]
     Active Substance: TREPROSTINIL
     Dosage: 0.375 MG, TID
     Route: 048
     Dates: start: 202204
  4. ORENITRAM [Suspect]
     Active Substance: TREPROSTINIL
     Dosage: 0.125 MG, TID
     Route: 048
  5. ORENITRAM [Suspect]
     Active Substance: TREPROSTINIL
     Dosage: 0.75 MG, TID
     Route: 048
  6. ORENITRAM [Suspect]
     Active Substance: TREPROSTINIL
     Indication: Pulmonary arterial hypertension
     Dosage: UNK
     Route: 048
  7. ORENITRAM [Suspect]
     Active Substance: TREPROSTINIL
     Indication: Pulmonary arterial hypertension
     Dosage: UNK
     Route: 048

REACTIONS (14)
  - Ascites [Unknown]
  - Oedema [Unknown]
  - Dizziness [Recovering/Resolving]
  - Headache [Unknown]
  - Chest discomfort [Unknown]
  - Diarrhoea [Unknown]
  - Constipation [Unknown]
  - Oedema peripheral [Unknown]
  - Cough [Unknown]
  - Illness [Unknown]
  - Gingival bleeding [Unknown]
  - Jugular vein distension [Unknown]
  - Palpitations [Unknown]
  - Skin discolouration [Unknown]

NARRATIVE: CASE EVENT DATE: 20220401
